FAERS Safety Report 6487964-X (Version None)
Quarter: 2009Q4

REPORT INFORMATION
  Report Type: 
  Country: None (occurrence: None)
  Receive Date: 20091209
  Receipt Date: 20091209
  Transmission Date: 20100525
  Serious: Yes (Hospitalization)
  Sender: FDA-Public Use
  Company Number: None

PATIENT
  Age: 47 Year
  Sex: Male
  Weight: 112.1 kg

DRUGS (8)
  1. LITHIUM CARBONATE [Suspect]
     Indication: BIPOLAR I DISORDER
     Dosage: 300MG X 2 TWICE DAILY PO RECENT/CHRONIC
     Route: 048
  2. ENALAPRIL MALEATE [Suspect]
     Indication: HYPERTENSION
     Dosage: RECENT
  3. COGENTIN [Suspect]
     Indication: PSYCHOTIC DISORDER
     Dosage: CHRONIC
  4. TRAZODONE HCL [Suspect]
     Indication: ANXIETY
     Dosage: CHRONIC
  5. TRAZODONE HCL [Suspect]
     Indication: DEPRESSION
     Dosage: CHRONIC
  6. DEPAKOTE [Concomitant]
  7. TRILEPTAL [Concomitant]
  8. METOPROLOL TARTRATE [Concomitant]

REACTIONS (3)
  - MENTAL STATUS CHANGES [None]
  - SOMNOLENCE [None]
  - THERAPEUTIC AGENT TOXICITY [None]
